FAERS Safety Report 11184731 (Version 1)
Quarter: 2015Q2

REPORT INFORMATION
  Report Type: Spontaneous
  Country: US (occurrence: None)
  Receive Date: 20150611
  Receipt Date: 20150611
  Transmission Date: 20150821
  Serious: Yes (Hospitalization)
  Sender: FDA-Public Use
  Company Number: None

PATIENT
  Sex: Female

DRUGS (5)
  1. AVEENO ACTIVE NATURALS POSITIVELY RADIANT NOS [Suspect]
     Active Substance: AVOBENZONE\HOMOSALATE\OCTISALATE\OCTOCRYLENE\OXYBENZONE
     Indication: ACNE
     Route: 061
  2. UNSPECIFIED BEAUTY PRODUCTS [Suspect]
     Active Substance: UNSPECIFIED INGREDIENT
     Route: 061
  3. AVEENO ACTIVE NATURALS POSITIVELY RADIANT NOS [Suspect]
     Active Substance: AVOBENZONE\HOMOSALATE\OCTISALATE\OCTOCRYLENE\OXYBENZONE
     Indication: THERAPEUTIC SKIN CARE TOPICAL
     Route: 061
  4. AVEENO SKIN BRIGHTENING DAILY SCRUB [Suspect]
     Active Substance: COSMETICS
     Indication: THERAPEUTIC SKIN CARE TOPICAL
     Route: 061
  5. AVEENO SKIN BRIGHTENING DAILY SCRUB [Suspect]
     Active Substance: COSMETICS
     Indication: ACNE
     Route: 061

REACTIONS (5)
  - Dermatitis [None]
  - Skin irritation [None]
  - Food allergy [None]
  - Acne [None]
  - Anaphylactic reaction [None]

NARRATIVE: CASE EVENT DATE: 2013
